FAERS Safety Report 19206615 (Version 1)
Quarter: 2021Q2

REPORT INFORMATION
  Report Type: Spontaneous
  Country: FR (occurrence: FR)
  Receive Date: 20210503
  Receipt Date: 20210503
  Transmission Date: 20210717
  Serious: Yes (Other)
  Sender: FDA-Public Use
  Company Number: FR-BAYER-2021-117168

PATIENT
  Age: 81 Year
  Sex: Female

DRUGS (1)
  1. STIVARGA [Suspect]
     Active Substance: REGORAFENIB
     Indication: COLON CANCER METASTATIC
     Dosage: 120 MG, QD
     Dates: start: 20210301, end: 20210323

REACTIONS (13)
  - Dermatitis [None]
  - Purulent discharge [Recovered/Resolved]
  - C-reactive protein increased [None]
  - Skin ulcer [Recovered/Resolved]
  - Skin bacterial infection [Recovered/Resolved]
  - Skin lesion inflammation [None]
  - Joint swelling [None]
  - Skin lesion [Recovered/Resolved]
  - Palmar-plantar erythrodysaesthesia syndrome [None]
  - Blister [Recovered/Resolved]
  - Osteoarthritis [None]
  - Erythema [Recovered/Resolved]
  - Ligament calcification [None]

NARRATIVE: CASE EVENT DATE: 20210319
